FAERS Safety Report 21938325 (Version 2)
Quarter: 2023Q1

REPORT INFORMATION
  Report Type: Spontaneous
  Country: KR (occurrence: KR)
  Receive Date: 20230201
  Receipt Date: 20230206
  Transmission Date: 20230417
  Serious: No
  Sender: FDA-Public Use
  Company Number: KR-PFIZER INC-PV202200113729

PATIENT
  Age: 55 Year
  Sex: Male

DRUGS (7)
  1. PAXLOVID [Suspect]
     Active Substance: NIRMATRELVIR\RITONAVIR
     Indication: COVID-19 treatment
     Dosage: [PF-07321332 300 MG]/[RITONAVIR 100 MG]; 2X/DAY
     Route: 048
     Dates: start: 20221128
  2. SETOPEN 8 HOURS ER [Concomitant]
     Dosage: UNK UNK, 2X/DAY
     Route: 048
     Dates: start: 20221128
  3. CODAEWON [Concomitant]
     Dosage: UNK UNK, 2X/DAY
     Route: 048
     Dates: start: 20221128
  4. UNIREBA [Concomitant]
     Dosage: UNK UNK, 2X/DAY
     Route: 048
     Dates: start: 20221128
  5. ERDORAL [Concomitant]
     Dosage: UNK UNK, 2X/DAY
     Route: 048
     Dates: start: 20221128
  6. MAGNESIUM HYDROXIDE [Concomitant]
     Active Substance: MAGNESIUM HYDROXIDE
     Indication: Constipation
     Dosage: UNK UNK, 2X/DAY
     Route: 048
     Dates: start: 20221128
  7. IRBESARTAN [Concomitant]
     Active Substance: IRBESARTAN
     Indication: Hypertension
     Dosage: UNK
     Route: 048
     Dates: start: 20221128

REACTIONS (6)
  - Dysgeusia [Not Recovered/Not Resolved]
  - Gastrooesophageal reflux disease [Not Recovered/Not Resolved]
  - Poor quality sleep [Not Recovered/Not Resolved]
  - Pruritus [Recovering/Resolving]
  - Nausea [Not Recovered/Not Resolved]
  - Product prescribing error [Unknown]

NARRATIVE: CASE EVENT DATE: 20221128
